FAERS Safety Report 7433370-0 (Version None)
Quarter: 2011Q2

REPORT INFORMATION
  Report Type: 
  Country: None (occurrence: None)
  Receive Date: 20110422
  Receipt Date: 20110412
  Transmission Date: 20111010
  Serious: Yes (Death, Other)
  Sender: FDA-Public Use
  Company Number: CN-ABBOTT-11P-035-0719165-00

PATIENT
  Age: 33 Year
  Sex: Male

DRUGS (8)
  1. PLATELETS [Concomitant]
     Indication: PRODUCT USED FOR UNKNOWN INDICATION
     Dosage: TRANSFUSIONS CONSTANTLY
  2. CYCLOSPORINE [Suspect]
     Indication: PROPHYLAXIS AGAINST GRAFT VERSUS HOST DISEASE
  3. CYCLOSPORINE [Suspect]
     Indication: APLASTIC ANAEMIA
  4. PREDNISONE [Suspect]
     Indication: PRODUCT USED FOR UNKNOWN INDICATION
     Dosage: 15-30 MG DAILY
  5. BLOOD TRANSFUSIONS [Concomitant]
     Indication: PRODUCT USED FOR UNKNOWN INDICATION
  6. ACYCLOVIR [Concomitant]
     Indication: VARICELLA
  7. RED CELL [Concomitant]
     Indication: PRODUCT USED FOR UNKNOWN INDICATION
     Dosage: TRANSFUSIONS CONSTANTLY
  8. ANTIBIOTICS [Concomitant]
     Indication: PANCYTOPENIA

REACTIONS (11)
  - VARICELLA [None]
  - LYMPHADENOPATHY [None]
  - THROMBOCYTOPENIA [None]
  - HAEMORRHAGE INTRACRANIAL [None]
  - PANCYTOPENIA [None]
  - TREATMENT FAILURE [None]
  - KAPOSI'S SARCOMA [None]
  - GRAFT VERSUS HOST DISEASE [None]
  - DIARRHOEA [None]
  - IMMUNOSUPPRESSION [None]
  - HEPATOSPLENOMEGALY [None]
